FAERS Safety Report 5361161-3 (Version None)
Quarter: 2007Q2

REPORT INFORMATION
  Report Type: 
  Country: None (occurrence: None)
  Receive Date: 20070618
  Receipt Date: 20070608
  Transmission Date: 20071010
  Serious: Yes (Congenital Anomaly, Other)
  Sender: FDA-Public Use
  Company Number: GB-ABBOTT-07P-167-0370882-00

PATIENT
  Sex: Male

DRUGS (2)
  1. VALPROATE SODIUM [Suspect]
     Indication: DRUG EXPOSURE DURING PREGNANCY
     Route: 064
  2. LAMOTRIGINE [Suspect]
     Indication: DRUG EXPOSURE DURING PREGNANCY
     Route: 064

REACTIONS (16)
  - ANOMALY OF EXTERNAL EAR CONGENITAL [None]
  - BRONCHOSTENOSIS [None]
  - CONGENITAL ANOMALY [None]
  - CONGENITAL EYELID MALFORMATION [None]
  - CONGENITAL NOSE MALFORMATION [None]
  - DEVELOPMENTAL DELAY [None]
  - DYSMORPHISM [None]
  - EYE MUSCLE TENOTOMY [None]
  - FOETAL ANTICONVULSANT SYNDROME [None]
  - HYDROCELE [None]
  - INGUINAL HERNIA [None]
  - LEARNING DISORDER [None]
  - LIGAMENT LAXITY [None]
  - LOW SET EARS [None]
  - RESPIRATORY DISORDER [None]
  - UVULA APLASIA [None]
